FAERS Safety Report 10099253 (Version 3)
Quarter: 2014Q2

REPORT INFORMATION
  Report Type: Spontaneous
  Country: US (occurrence: US)
  Receive Date: 20140423
  Receipt Date: 20140527
  Transmission Date: 20141212
  Serious: No
  Sender: FDA-Public Use
  Company Number: US-PFIZER INC-2014110155

PATIENT
  Age: 75 Year
  Sex: Male
  Weight: 87.53 kg

DRUGS (11)
  1. LYRICA [Suspect]
     Indication: SPINAL OSTEOARTHRITIS
     Dosage: 50 MG, 3X/DAY
     Route: 048
  2. LYRICA [Suspect]
     Dosage: 25 MG, 2X/DAY
     Route: 048
  3. PRAVACHOL [Concomitant]
     Indication: BLOOD CHOLESTEROL
     Dosage: 40 MG, QHS
     Route: 048
  4. NOVOLOG FLEXPEN [Concomitant]
     Dosage: 6- 10 UNITS, UNK SLIDING SCALE
     Route: 058
  5. LEVEMIR [Concomitant]
     Dosage: 30 IU, DAILY
     Route: 058
  6. AMITRIPTYLINE HYDROCHLORIDE [Concomitant]
     Dosage: 100 MG, 1X/DAY
     Route: 048
  7. METFORMIN HYDROCHLORIDE [Concomitant]
     Dosage: 500 MG, 2X/DAY
     Route: 048
  8. POTASSIUM CHLORIDE [Concomitant]
     Dosage: 10 MEQ, 1X/DAY
     Route: 048
  9. FUROSEMIDE [Concomitant]
     Dosage: 40 MG, 1X/DAY
     Route: 048
  10. ASA [Concomitant]
     Dosage: 81 MG, DAILY
     Route: 048
  11. MEGA RED [Concomitant]
     Dosage: 300 MG, 1X/DAY
     Route: 048

REACTIONS (4)
  - Back pain [Unknown]
  - Pain in extremity [Unknown]
  - Pain [Unknown]
  - Somnolence [Unknown]
